FAERS Safety Report 18764690 (Version 16)
Quarter: 2021Q4

REPORT INFORMATION
  Report Type: Spontaneous
  Country: CZ (occurrence: CZ)
  Receive Date: 20210120
  Receipt Date: 20211215
  Transmission Date: 20220303
  Serious: Yes (Hospitalization, Other)
  Sender: FDA-Public Use
  Company Number: CZ-002147023-NVSC2021CZ004535

PATIENT
  Age: 45 Year
  Sex: Male

DRUGS (32)
  1. TOPIRAMATE [Suspect]
     Active Substance: TOPIRAMATE
     Indication: Epilepsy
     Dosage: 200 MILLIGRAM, ONCE DAILY (QD)
     Route: 048
  2. TOPIRAMATE [Suspect]
     Active Substance: TOPIRAMATE
     Indication: Drug therapy
  3. TOPIRAMATE [Suspect]
     Active Substance: TOPIRAMATE
     Indication: Seizure
  4. TOPIRAMATE [Suspect]
     Active Substance: TOPIRAMATE
     Indication: Psychogenic seizure
  5. TOPIRAMATE [Suspect]
     Active Substance: TOPIRAMATE
     Indication: Depression
  6. LAMOTRIGINE [Suspect]
     Active Substance: LAMOTRIGINE
     Indication: Seizure
     Dosage: 400 MILLIGRAM, OD
     Route: 065
  7. LAMOTRIGINE [Suspect]
     Active Substance: LAMOTRIGINE
     Indication: Drug therapy
  8. LAMOTRIGINE [Suspect]
     Active Substance: LAMOTRIGINE
     Indication: Psychogenic seizure
  9. LAMOTRIGINE [Suspect]
     Active Substance: LAMOTRIGINE
     Indication: Epilepsy
  10. LAMOTRIGINE [Suspect]
     Active Substance: LAMOTRIGINE
     Indication: Product used for unknown indication
  11. ESLICARBAZEPINE [Suspect]
     Active Substance: ESLICARBAZEPINE
     Indication: Epilepsy
     Dosage: UNK
     Route: 065
  12. ESLICARBAZEPINE [Suspect]
     Active Substance: ESLICARBAZEPINE
     Indication: Psychogenic seizure
  13. VALPROATE [Suspect]
     Active Substance: VALPROIC ACID
     Indication: Epilepsy
     Dosage: UNK
     Route: 065
  14. VALPROATE [Suspect]
     Active Substance: VALPROIC ACID
     Indication: Depression
  15. VALPROATE [Suspect]
     Active Substance: VALPROIC ACID
     Indication: Seizure
  16. VALPROATE [Suspect]
     Active Substance: VALPROIC ACID
     Indication: Psychogenic seizure
  17. VALPROATE [Suspect]
     Active Substance: VALPROIC ACID
     Indication: Weight increased
  18. VALPROATE [Suspect]
     Active Substance: VALPROIC ACID
     Indication: Seizure
  19. LEVETIRACETAM [Suspect]
     Active Substance: LEVETIRACETAM
     Indication: Psychogenic seizure
     Dosage: UNK
     Route: 065
  20. LEVETIRACETAM [Suspect]
     Active Substance: LEVETIRACETAM
     Indication: Depression
  21. LEVETIRACETAM [Suspect]
     Active Substance: LEVETIRACETAM
     Indication: Epilepsy
  22. LEVETIRACETAM [Suspect]
     Active Substance: LEVETIRACETAM
     Indication: Epilepsy
  23. LEVETIRACETAM [Suspect]
     Active Substance: LEVETIRACETAM
     Indication: Seizure
  24. LEVETIRACETAM [Suspect]
     Active Substance: LEVETIRACETAM
     Indication: Off label use
  25. CARBAMAZEPINE [Suspect]
     Active Substance: CARBAMAZEPINE
     Indication: Epilepsy
     Dosage: UNK
     Route: 065
  26. CARBAMAZEPINE [Suspect]
     Active Substance: CARBAMAZEPINE
     Indication: Psychogenic seizure
  27. CARBAMAZEPINE [Suspect]
     Active Substance: CARBAMAZEPINE
     Indication: Erectile dysfunction
  28. CARBAMAZEPINE [Suspect]
     Active Substance: CARBAMAZEPINE
     Indication: Seizure
  29. CARBAMAZEPINE [Suspect]
     Active Substance: CARBAMAZEPINE
     Indication: Epilepsy
  30. BRIVARACETAM [Concomitant]
     Active Substance: BRIVARACETAM
     Indication: Epilepsy
     Dosage: 25 MILLIGRAM, 2X/DAY (BID)
     Route: 065
  31. BRIVARACETAM [Concomitant]
     Active Substance: BRIVARACETAM
     Indication: Psychogenic seizure
     Dosage: 100 MILLIGRAM, ONCE DAILY (QD)
     Route: 065
  32. BRIVARACETAM [Concomitant]
     Active Substance: BRIVARACETAM
     Indication: Seizure
     Dosage: 25 MILLIGRAM, 2X/DAY (BID)
     Route: 065

REACTIONS (14)
  - Psychogenic seizure [Recovered/Resolved]
  - Condition aggravated [Recovered/Resolved]
  - Seizure [Not Recovered/Not Resolved]
  - Erectile dysfunction [Recovered/Resolved]
  - Mental impairment [Unknown]
  - Weight increased [Unknown]
  - Thinking abnormal [Unknown]
  - Drug intolerance [Unknown]
  - Mental disorder [Recovered/Resolved]
  - Psychiatric symptom [Unknown]
  - Therapeutic product effect decreased [Unknown]
  - Off label use [Unknown]
  - Product use in unapproved indication [Unknown]
  - Therapeutic product effect incomplete [Unknown]
